FAERS Safety Report 6397099-2 (Version None)
Quarter: 2009Q4

REPORT INFORMATION
  Report Type: 
  Country: None (occurrence: None)
  Receive Date: 20091012
  Receipt Date: 20091005
  Transmission Date: 20100525
  Serious: Yes (Hospitalization, Congenital Anomaly)
  Sender: FDA-Public Use
  Company Number: A0652500A

PATIENT
  Sex: Male
  Weight: 3.2 kg

DRUGS (6)
  1. PAXIL [Suspect]
     Indication: DEPRESSION
     Dates: start: 20000101, end: 20040617
  2. VITAMIN AND MINERAL PRENATAL SUPPLEMENT W/ FOLIC ACID CAP [Concomitant]
  3. ZOLOFT [Concomitant]
  4. IRON SUPPLEMENT [Concomitant]
  5. VALTREX [Concomitant]
  6. ANTIBIOTIC [Concomitant]

REACTIONS (23)
  - ATRIAL SEPTAL DEFECT [None]
  - BRONCHIOLITIS [None]
  - CARDIAC MURMUR [None]
  - CONGENITAL HEART VALVE DISORDER [None]
  - CONGENITAL PULMONARY VALVE DISORDER [None]
  - DRUG EXPOSURE DURING PREGNANCY [None]
  - DYSMORPHISM [None]
  - DYSPNOEA [None]
  - HEAD CIRCUMFERENCE ABNORMAL [None]
  - HEART DISEASE CONGENITAL [None]
  - HYPERTENSION [None]
  - HYPERTONIA [None]
  - NOONAN SYNDROME [None]
  - PATENT DUCTUS ARTERIOSUS [None]
  - PULMONARY ARTERY DILATATION [None]
  - PULMONARY VALVE STENOSIS [None]
  - PULMONARY VALVE STENOSIS CONGENITAL [None]
  - RESPIRATORY DISORDER [None]
  - RESPIRATORY TRACT CONGESTION [None]
  - STRABISMUS [None]
  - TACHYPNOEA [None]
  - VENTRICULAR HYPERTROPHY [None]
  - WHEEZING [None]
